FAERS Safety Report 12787527 (Version 3)
Quarter: 2017Q1

REPORT INFORMATION
  Report Type: Spontaneous
  Country: US (occurrence: US)
  Receive Date: 20160928
  Receipt Date: 20170126
  Transmission Date: 20170428
  Serious: No
  Sender: FDA-Public Use
  Company Number: US-GLAXOSMITHKLINE-US2016GSK141265

PATIENT
  Age: 34 Year
  Sex: Female

DRUGS (2)
  1. TANZEUM [Suspect]
     Active Substance: ALBIGLUTIDE
     Indication: BLOOD GLUCOSE INCREASED
     Dosage: 50 MG, WE
     Route: 042
     Dates: start: 201512
  2. TANZEUM [Suspect]
     Active Substance: ALBIGLUTIDE
     Indication: POLYCYSTIC OVARIES

REACTIONS (7)
  - Device use error [Unknown]
  - Off label use [Unknown]
  - Device leakage [Unknown]
  - Product preparation error [Unknown]
  - Product use issue [Unknown]
  - Exposure via skin contact [Unknown]
  - Drug dose omission [Unknown]

NARRATIVE: CASE EVENT DATE: 201606
